FAERS Safety Report 7460669-4 (Version None)
Quarter: 2011Q2

REPORT INFORMATION
  Report Type: 
  Country: None (occurrence: None)
  Receive Date: 20110427
  Receipt Date: 20110415
  Transmission Date: 20111010
  Serious: Yes (Death)
  Sender: FDA-Public Use
  Company Number: ALA_02575_2011

PATIENT
  Sex: Male

DRUGS (1)
  1. REGLAN [Suspect]
     Indication: PRODUCT USED FOR UNKNOWN INDICATION
     Dosage: 10 MG, ORAL
     Route: 048
     Dates: start: 20021101, end: 20091201

REACTIONS (4)
  - TARDIVE DYSKINESIA [None]
  - TREMOR [None]
  - MOVEMENT DISORDER [None]
  - PRODUCT SUBSTITUTION ISSUE [None]
